FAERS Safety Report 14570018 (Version 1)
Quarter: 2018Q1

REPORT INFORMATION
  Report Type: Report from Study
  Country: JP (occurrence: JP)
  Receive Date: 20180225
  Receipt Date: 20180225
  Transmission Date: 20180509
  Serious: Yes (Hospitalization)
  Sender: FDA-Public Use
  Company Number: JP-TEVA-683202ISR

PATIENT
  Age: 40 Year
  Sex: Female
  Weight: 47.9 kg

DRUGS (15)
  1. STAYBLA [Concomitant]
     Active Substance: IMIDAFENACIN
     Dates: start: 20160714, end: 20161011
  2. GLATIRAMER ACETATE. [Suspect]
     Active Substance: GLATIRAMER ACETATE
     Route: 058
     Dates: start: 20160726
  3. MAGNESIUM OXIDE. [Concomitant]
     Active Substance: MAGNESIUM OXIDE
     Dates: start: 20160610
  4. FERROUS SODIUM CITRATE [Concomitant]
     Active Substance: SODIUM FERROUS CITRATE
     Dates: start: 20160621, end: 20160707
  5. SOL-MELCORT [Concomitant]
     Active Substance: METHYLPREDNISOLONE SODIUM SUCCINATE
     Dates: start: 20160628, end: 20160630
  6. ETIZOLAM [Concomitant]
     Active Substance: ETIZOLAM
     Dates: start: 20160609, end: 20160727
  7. MEDICON [Concomitant]
     Active Substance: DEXTROMETHORPHAN HYDROBROMIDE
     Dates: start: 20160721, end: 20160722
  8. FEXOFENADINE HYDROCHLORIDE. [Concomitant]
     Active Substance: FEXOFENADINE HYDROCHLORIDE
     Dates: start: 20160914
  9. BELSOMRA [Concomitant]
     Active Substance: SUVOREXANT
     Dates: start: 20160729
  10. GLATIRAMER ACETATE. [Suspect]
     Active Substance: GLATIRAMER ACETATE
     Indication: RELAPSING-REMITTING MULTIPLE SCLEROSIS
     Dosage: 20 MILLIGRAM/MILLILITERS DAILY;
     Route: 058
     Dates: start: 20160629, end: 20160715
  11. LANSOPRAZOLE. [Concomitant]
     Active Substance: LANSOPRAZOLE
     Dates: start: 20160603, end: 20160811
  12. BESACOLIN [Concomitant]
     Active Substance: BETHANECHOL CHLORIDE
     Dates: start: 20160628, end: 20160702
  13. MIDODRINE HYDROCHLORIDE. [Concomitant]
     Active Substance: MIDODRINE HYDROCHLORIDE
     Dates: start: 20160802, end: 20160927
  14. LYRICA [Concomitant]
     Active Substance: PREGABALIN
     Dates: start: 20161228
  15. PREDONINE [Concomitant]
     Active Substance: PREDNISOLONE
     Dates: start: 20160606, end: 20160715

REACTIONS (2)
  - Injection site erythema [Recovered/Resolved]
  - Circulatory collapse [Recovering/Resolving]

NARRATIVE: CASE EVENT DATE: 20160704
